FAERS Safety Report 8881485 (Version 4)
Quarter: 2013Q1

REPORT INFORMATION
  Report Type: Spontaneous
  Country: US (occurrence: US)
  Receive Date: 20121102
  Receipt Date: 20130304
  Transmission Date: 20140127
  Serious: Yes (Hospitalization, Disabling, Other)
  Sender: FDA-Public Use
  Company Number: US-009507513-1210USA010390

PATIENT
  Sex: Female
  Weight: 44.9 kg

DRUGS (4)
  1. FOSAMAX [Suspect]
     Indication: OSTEOPOROSIS
     Dosage: 70 MG, UNK
     Route: 048
     Dates: start: 20030127, end: 20090713
  2. FOSAMAX [Suspect]
     Indication: OSTEOPENIA
  3. FOSAMAX [Suspect]
     Indication: OSTEOPENIA
     Dosage: 70 MG, QW
     Route: 048
     Dates: start: 20080401, end: 201105
  4. METFORMIN [Concomitant]
     Dosage: UNK
     Dates: start: 1992

REACTIONS (19)
  - Femur fracture [Not Recovered/Not Resolved]
  - Fall [Unknown]
  - Open reduction of fracture [Unknown]
  - Femur fracture [Recovering/Resolving]
  - Fall [Unknown]
  - Open reduction of fracture [Unknown]
  - Low turnover osteopathy [Not Recovered/Not Resolved]
  - Cataract operation [Unknown]
  - Cataract operation [Unknown]
  - Dyslipidaemia [Not Recovered/Not Resolved]
  - Renal failure chronic [Not Recovered/Not Resolved]
  - Iron deficiency anaemia [Not Recovered/Not Resolved]
  - Dehydration [Unknown]
  - Hyponatraemia [Recovering/Resolving]
  - Drug hypersensitivity [Unknown]
  - Constipation [Unknown]
  - Gastrooesophageal reflux disease [Not Recovered/Not Resolved]
  - Cholecystectomy [Unknown]
  - Insomnia [Unknown]
